FAERS Safety Report 26095982 (Version 2)
Quarter: 2025Q4

REPORT INFORMATION
  Report Type: Spontaneous
  Country: EU (occurrence: EU)
  Receive Date: 20251127
  Receipt Date: 20251201
  Transmission Date: 20260118
  Serious: Yes (Hospitalization, Other)
  Sender: JAZZ
  Company Number: None

PATIENT
  Age: 40 Year
  Weight: 63 kg

DRUGS (1)
  1. ZIIHERA [Suspect]
     Active Substance: ZANIDATAMAB-HRII
     Indication: Cholangiocarcinoma
     Dosage: UNK

REACTIONS (1)
  - Encephalopathy [Recovered/Resolved]

NARRATIVE: CASE EVENT DATE: 20251029
